FAERS Safety Report 21927146 (Version 1)
Quarter: 2023Q1

REPORT INFORMATION
  Report Type: Spontaneous
  Country: US (occurrence: US)
  Receive Date: 20230130
  Receipt Date: 20230130
  Transmission Date: 20230417
  Serious: No
  Sender: FDA-Public Use
  Company Number: US-SAREPTA THERAPEUTICS INC.-SRP2022-002408

PATIENT
  Age: 12 Year
  Sex: Male
  Weight: 61.678 kg

DRUGS (8)
  1. AMONDYS 45 [Suspect]
     Active Substance: CASIMERSEN
     Indication: Duchenne muscular dystrophy
     Dosage: 1700 MILLIGRAM, WEEKLY
     Route: 042
     Dates: start: 20220526, end: 20220721
  2. AMONDYS 45 [Suspect]
     Active Substance: CASIMERSEN
     Dosage: 1800 MILLIGRAM WEEKLY
     Route: 042
     Dates: start: 20220728
  3. LISINOPRIL [Concomitant]
     Active Substance: LISINOPRIL
     Indication: Product used for unknown indication
     Dosage: 10 MILLIGRAM, QD
  4. DEXAMETHASONE\NEOMYCIN SULFATE\POLYMYXIN B SULFATE [Concomitant]
     Active Substance: DEXAMETHASONE\NEOMYCIN SULFATE\POLYMYXIN B SULFATE
     Indication: Product used for unknown indication
     Dosage: 1 DROP, QID
  5. ERGOCALCIFEROL [Concomitant]
     Active Substance: ERGOCALCIFEROL
     Indication: Product used for unknown indication
     Dosage: 1.25 MILLIGRAM WEEKLY
     Route: 048
  6. ERYTHROMYCIN [Concomitant]
     Active Substance: ERYTHROMYCIN
     Indication: Product used for unknown indication
     Dosage: 0.5 IN EACH EYE DAILY
  7. FLINTSTONES [Concomitant]
     Indication: Product used for unknown indication
     Dosage: MVI DAILY
  8. PREDNISONE [Concomitant]
     Active Substance: PREDNISONE
     Indication: Product used for unknown indication
     Dosage: 50 MILLIGRAM QS FRIDAY AND SATURDAY

REACTIONS (2)
  - Weight increased [Unknown]
  - Underdose [Unknown]

NARRATIVE: CASE EVENT DATE: 20220526
